FAERS Safety Report 18802182 (Version 1)
Quarter: 2021Q1

REPORT INFORMATION
  Report Type: Spontaneous
  Country: US (occurrence: US)
  Receive Date: 20210128
  Receipt Date: 20210128
  Transmission Date: 20210419
  Serious: No
  Sender: FDA-Public Use
  Company Number: US-PFIZER INC-2021072736

PATIENT
  Age: 71 Year
  Sex: Female
  Weight: 108.86 kg

DRUGS (1)
  1. CELEBREX [Suspect]
     Active Substance: CELECOXIB
     Indication: OSTEOARTHRITIS
     Dosage: UNK

REACTIONS (2)
  - Dyspepsia [Unknown]
  - Eructation [Unknown]
